FAERS Safety Report 7750418-4 (Version None)
Quarter: 2011Q3

REPORT INFORMATION
  Report Type: 
  Country: None (occurrence: None)
  Receive Date: 20110914
  Receipt Date: 20110908
  Transmission Date: 20111222
  Serious: Yes (Other)
  Sender: FDA-Public Use
  Company Number: DE-AMGEN-DEUCT2011045935

PATIENT
  Age: 74 Year
  Sex: Male

DRUGS (4)
  1. PANITUMUMAB [Suspect]
     Indication: GASTROOESOPHAGEAL CANCER
     Dosage: 9 MG/M2, UNK
     Dates: start: 20110630
  2. CAPECITABINE [Concomitant]
     Dosage: 625 MG/M2, UNK
     Dates: start: 20110701
  3. EPIRUBICIN [Concomitant]
     Dosage: 50 MG/M2, UNK
     Dates: start: 20110701
  4. CISPLATIN [Concomitant]
     Dosage: 60 MG/M2, UNK
     Dates: start: 20110701

REACTIONS (1)
  - IMPAIRED HEALING [None]
